FAERS Safety Report 24253454 (Version 2)
Quarter: 2024Q3

REPORT INFORMATION
  Report Type: Other
  Country: US (occurrence: US)
  Receive Date: 20240827
  Receipt Date: 20240904
  Transmission Date: 20241017
  Serious: Yes (Hospitalization)
  Sender: TRAVERE THERAPEUTICS
  Company Number: US-TRAVERE-2024TVT00829

PATIENT
  Sex: Female

DRUGS (2)
  1. FILSPARI [Suspect]
     Active Substance: SPARSENTAN
     Indication: IgA nephropathy
     Route: 048
     Dates: start: 20240818
  2. FILSPARI [Suspect]
     Active Substance: SPARSENTAN
     Dosage: STARTED DOSE THIS WEEK
     Route: 048
     Dates: start: 202408

REACTIONS (1)
  - Osteoporosis [Recovering/Resolving]
